FAERS Safety Report 11293876 (Version 1)
Quarter: 2015Q3

REPORT INFORMATION
  Report Type: Spontaneous
  Country: RU (occurrence: RU)
  Receive Date: 20150722
  Receipt Date: 20150722
  Transmission Date: 20151125
  Serious: Yes (Life-Threatening)
  Sender: FDA-Public Use
  Company Number: RU-ABBVIE-15P-251-1432025-00

PATIENT
  Age: 13 Year
  Sex: Female

DRUGS (1)
  1. DEPAKENE [Suspect]
     Active Substance: VALPROIC ACID
     Indication: PRODUCT USED FOR UNKNOWN INDICATION
     Route: 048

REACTIONS (4)
  - Epilepsy [Recovering/Resolving]
  - Frequent bowel movements [Recovering/Resolving]
  - Abnormal dreams [Recovering/Resolving]
  - Agitation [Recovering/Resolving]
